FAERS Safety Report 6906795-7 (Version None)
Quarter: 2010Q3

REPORT INFORMATION
  Report Type: 
  Country: None (occurrence: None)
  Receive Date: 20100804
  Receipt Date: 20100701
  Transmission Date: 20110219
  Serious: Yes (Hospitalization)
  Sender: FDA-Public Use
  Company Number: PHHO2010GB07886

PATIENT
  Sex: Male
  Weight: 87 kg

DRUGS (3)
  1. ZOLEDRONATE T29581+SOLINJ+BM [Suspect]
     Dosage: 4MG EVERY 3 WEEKS
     Dates: start: 20091029, end: 20100122
  2. DOCETAXEL [Concomitant]
     Dosage: UNK
     Dates: start: 20091029, end: 20091217
  3. PREDNISOLONE [Concomitant]
     Dosage: UNK
     Dates: start: 20091029, end: 20091217

REACTIONS (14)
  - ABDOMINAL PAIN [None]
  - ACUTE ABDOMEN [None]
  - BLADDER CATHETERISATION [None]
  - COLECTOMY [None]
  - CONCOMITANT DISEASE PROGRESSION [None]
  - DIVERTICULUM [None]
  - ILEAL PERFORATION [None]
  - INTESTINAL ANASTOMOSIS [None]
  - LAPAROTOMY [None]
  - PERITONITIS [None]
  - PNEUMOPERITONEUM [None]
  - PYREXIA [None]
  - URINARY TRACT DISORDER [None]
  - VOMITING [None]
